FAERS Safety Report 21312836 (Version 1)
Quarter: 2022Q3

REPORT INFORMATION
  Report Type: Spontaneous
  Country: GB (occurrence: GB)
  Receive Date: 20220909
  Receipt Date: 20220909
  Transmission Date: 20221027
  Serious: Yes (Life-Threatening)
  Sender: FDA-Public Use
  Company Number: None

PATIENT
  Age: 44 Year
  Sex: Female
  Weight: 83 kg

DRUGS (17)
  1. DAPTOMYCIN [Suspect]
     Active Substance: DAPTOMYCIN
     Indication: Product used for unknown indication
     Dosage: DAY 5 OF 6 WEEK COURSE
     Route: 042
     Dates: start: 20220824
  2. AMITRIPTYLINE HYDROCHLORIDE [Concomitant]
     Active Substance: AMITRIPTYLINE HYDROCHLORIDE
     Dosage: AT NIGHT
     Dates: start: 20210831
  3. ASPIRIN [Concomitant]
     Active Substance: ASPIRIN
     Dates: start: 20210831
  4. ATORVASTATIN [Concomitant]
     Active Substance: ATORVASTATIN
     Dates: start: 20210831
  5. BUPRENORPHINE [Concomitant]
     Active Substance: BUPRENORPHINE
     Dates: start: 20210831
  6. CYCLIZINE [Concomitant]
     Active Substance: CYCLIZINE
     Dosage: UP TO 3 TIMES  A DAY
     Dates: start: 20210831
  7. DESLORATADINE [Concomitant]
     Active Substance: DESLORATADINE
     Dates: start: 20210831
  8. DULOXETINE [Concomitant]
     Active Substance: DULOXETINE
     Dates: start: 20210831
  9. ESOMEPRAZOLE [Concomitant]
     Active Substance: ESOMEPRAZOLE
     Dates: start: 20210831
  10. POLYETHYLENE GLYCOLS [Concomitant]
     Active Substance: POLYETHYLENE GLYCOLS
     Dosage: 2 SACHETS DAILY. ADJUST ACCORDING TO BOWEL MOVE...
     Dates: start: 20210831
  11. METFORMIN [Concomitant]
     Active Substance: METFORMIN HYDROCHLORIDE
     Dosage: 1 MANE; 1 PM; 2 NOCTE
     Dates: start: 20210831
  12. MORPHINE SULFATE [Concomitant]
     Active Substance: MORPHINE SULFATE
     Dosage: TAKE 5-10MG (2.5 TO 5MLS) UP TO 4 TIMES A DAY
     Dates: start: 20210831
  13. NOVORAPID [Concomitant]
     Active Substance: INSULIN ASPART
     Dosage: USE AS DIRECTED
     Dates: start: 20210831
  14. ACETAMINOPHEN [Concomitant]
     Active Substance: ACETAMINOPHEN
     Dosage: UP TO 4 TIMES/DAY
     Dates: start: 20210831
  15. PREGABALIN [Concomitant]
     Active Substance: PREGABALIN
     Dates: start: 20210831
  16. INSULIN GLARGINE [Concomitant]
     Active Substance: INSULIN GLARGINE
     Dosage: AT NIGHT
     Dates: start: 20220621, end: 20220718
  17. INSULIN DEGLUDEC [Concomitant]
     Active Substance: INSULIN DEGLUDEC
     Dosage: USE ONCE DAILY AS ADVISED (TO START ON 46 UNITS)
     Dates: start: 20220414

REACTIONS (2)
  - Catheter site pain [Unknown]
  - Anaphylactic reaction [Unknown]

NARRATIVE: CASE EVENT DATE: 20220824
